FAERS Safety Report 17727073 (Version 1)
Quarter: 2020Q2

REPORT INFORMATION
  Report Type: Spontaneous
  Country: US (occurrence: US)
  Receive Date: 20200430
  Receipt Date: 20200430
  Transmission Date: 20200714
  Serious: Yes (Other)
  Sender: FDA-Public Use
  Company Number: US-HBP-2019US019705

PATIENT
  Sex: Male

DRUGS (1)
  1. VALCHLOR [Suspect]
     Active Substance: MECHLORETHAMINE
     Indication: CUTANEOUS T-CELL LYMPHOMA
     Dosage: THIN FILM, QD
     Route: 061

REACTIONS (6)
  - Blister [Not Recovered/Not Resolved]
  - Rash [Unknown]
  - Skin discolouration [Not Recovered/Not Resolved]
  - Off label use [Unknown]
  - Cutaneous T-cell lymphoma recurrent [Unknown]
  - Skin erosion [Not Recovered/Not Resolved]
